FAERS Safety Report 4890305-2 (Version None)
Quarter: 2006Q1

REPORT INFORMATION
  Report Type: 
  Country: None (occurrence: None)
  Receive Date: 20060124
  Receipt Date: 20060113
  Transmission Date: 20060701
  Serious: Yes (Hospitalization)
  Sender: FDA-Public Use
  Company Number: GB-MERCK-0601GBR00082

PATIENT
  Age: 36 Year
  Sex: Female
  Weight: 70 kg

DRUGS (8)
  1. PRIMAXIN [Suspect]
     Indication: PNEUMONIA
     Route: 042
     Dates: start: 20051108, end: 20051115
  2. CITALOPRAM [Concomitant]
     Route: 048
     Dates: start: 20051104
  3. DICLOFENAC [Concomitant]
     Route: 065
     Dates: start: 20051104
  4. QUETIAPINE FUMARATE [Concomitant]
     Route: 065
     Dates: start: 20051104
  5. DIAZEPAM [Concomitant]
     Route: 065
     Dates: start: 20051104
  6. ESOMEPRAZOLE [Concomitant]
     Route: 042
     Dates: start: 20051104
  7. ENOXAPARIN SODIUM [Concomitant]
     Route: 058
     Dates: start: 20051108
  8. HYDROCORTISONE [Concomitant]
     Route: 065
     Dates: start: 20051109

REACTIONS (1)
  - LIVER FUNCTION TEST ABNORMAL [None]
